FAERS Safety Report 21641686 (Version 1)
Quarter: 2022Q4

REPORT INFORMATION
  Report Type: Spontaneous
  Country: US (occurrence: US)
  Receive Date: 20221125
  Receipt Date: 20221125
  Transmission Date: 20230112
  Serious: No
  Sender: FDA-Public Use
  Company Number: US-APOTEX-2022AP008067

PATIENT
  Sex: Male

DRUGS (1)
  1. NICOTINE TRANSDERMAL SYSTEM [Suspect]
     Active Substance: NICOTINE
     Indication: Smoking cessation therapy
     Dosage: 1 PATCH, QD
     Route: 062

REACTIONS (4)
  - Incorrect dose administered by product [Unknown]
  - Product adhesion issue [Unknown]
  - Product substitution issue [Unknown]
  - Drug ineffective [Unknown]
